FAERS Safety Report 21768166 (Version 1)
Quarter: 2022Q4

REPORT INFORMATION
  Report Type: Spontaneous
  Country: NL (occurrence: NL)
  Receive Date: 20221222
  Receipt Date: 20221222
  Transmission Date: 20230113
  Serious: Yes (Hospitalization, Disabling)
  Sender: FDA-Public Use
  Company Number: None

PATIENT
  Sex: Male
  Weight: 71 kg

DRUGS (3)
  1. CARBOPLATIN [Suspect]
     Active Substance: CARBOPLATIN
     Indication: Non-small cell lung cancer
     Dosage: 670?CARBOPLATIN INFUSION SOLUTION
     Route: 042
     Dates: start: 20221117, end: 20221215
  2. PEMETREXED Infusion/ Brand name not specified [Concomitant]
     Indication: Product used for unknown indication
     Dosage: INFUUS, 1 MG/MG (MILLIGRAM PER MILLIGRAM)?PEMETREXED INFUSION
  3. PEMBROLIZUMAB Infusion/ Brand name not specified [Concomitant]
     Indication: Product used for unknown indication
     Dosage: INFUUS, 1 MG/MG (MILLIGRAM PER MILLIGRAM)?PEMBROLIZUMAB INFUSION

REACTIONS (1)
  - Demyelinating polyneuropathy [Not Recovered/Not Resolved]
